FAERS Safety Report 4743332-X (Version None)
Quarter: 2005Q3

REPORT INFORMATION
  Report Type: 
  Country: None (occurrence: None)
  Receive Date: 20050809
  Receipt Date: 20050801
  Transmission Date: 20060218
  Serious: Yes (Other)
  Sender: FDA-Public Use
  Company Number: 200512560BCC

PATIENT
  Age: 76 Year
  Sex: Female
  Weight: 68.0396 kg

DRUGS (3)
  1. ASPIRIN [Suspect]
     Dosage: 325 MG, ONCE, ORAL
     Route: 048
     Dates: start: 20050620
  2. ASPIRIN [Suspect]
     Indication: CARDIAC FAILURE
     Dosage: 81 MG, QD, ORAL
     Route: 048
  3. SYNTHROID [Concomitant]

REACTIONS (3)
  - HYPERSENSITIVITY [None]
  - REACTION TO AZO-DYES [None]
  - RESPIRATORY DISORDER [None]
